FAERS Safety Report 21673958 (Version 1)
Quarter: 2022Q4

REPORT INFORMATION
  Report Type: Spontaneous
  Country: US (occurrence: None)
  Receive Date: 20221201
  Receipt Date: 20221201
  Transmission Date: 20230113
  Serious: No
  Sender: FDA-Public Use
  Company Number: None

PATIENT
  Age: 27 Year
  Sex: Female
  Weight: 55.8 kg

DRUGS (1)
  1. DEXTROAMPHET SACCHARAT, AMPHET ASPARTATE, DEXTROAMPHET SULFATE AND AMP [Suspect]
     Active Substance: AMPHETAMINE ASPARTATE\AMPHETAMINE SULFATE\DEXTROAMPHETAMINE SACCHARATE\DEXTROAMPHETAMINE SULFATE
     Indication: Attention deficit hyperactivity disorder
     Dosage: OTHER QUANTITY : 1 TABLET(S);?OTHER FREQUENCY : 2-3 TIMES A DAY;?
     Route: 048
     Dates: start: 20221201, end: 20221201

REACTIONS (5)
  - Drug ineffective [None]
  - Feeling abnormal [None]
  - Dizziness [None]
  - Lethargy [None]
  - Irritability [None]

NARRATIVE: CASE EVENT DATE: 20221201
